FAERS Safety Report 7757567-5 (Version None)
Quarter: 2011Q3

REPORT INFORMATION
  Report Type: 
  Country: None (occurrence: None)
  Receive Date: 20110916
  Receipt Date: 20110907
  Transmission Date: 20111222
  Serious: Yes (Other)
  Sender: FDA-Public Use
  Company Number: US-CELGENEUS-163-21880-11090983

PATIENT
  Sex: Female

DRUGS (5)
  1. REVLIMID [Suspect]
     Dosage: 15-10MG
     Route: 048
     Dates: start: 20090401, end: 20100101
  2. REVLIMID [Suspect]
     Dosage: 10 MILLIGRAM
     Route: 048
     Dates: start: 20080201
  3. PLAVIX [Concomitant]
     Route: 065
  4. REVLIMID [Suspect]
     Dosage: 5 MILLIGRAM
     Route: 048
     Dates: start: 20100401
  5. ASPIRIN [Concomitant]
     Route: 065

REACTIONS (3)
  - MACULAR DEGENERATION [None]
  - OEDEMA PERIPHERAL [None]
  - DIABETIC RETINOPATHY [None]
